FAERS Safety Report 24691130 (Version 6)
Quarter: 2025Q3

REPORT INFORMATION
  Report Type: Spontaneous
  Country: GB (occurrence: GB)
  Receive Date: 20241203
  Receipt Date: 20250915
  Transmission Date: 20251020
  Serious: Yes (Hospitalization)
  Sender: MYLAN
  Company Number: GB-MYLANLABS-2024M1106925

PATIENT
  Sex: Male

DRUGS (3)
  1. CLOZARIL [Suspect]
     Active Substance: CLOZAPINE
     Indication: Schizophrenia
  2. CLOZARIL [Suspect]
     Active Substance: CLOZAPINE
     Indication: Bipolar disorder
  3. CLOZARIL [Suspect]
     Active Substance: CLOZAPINE

REACTIONS (7)
  - Critical illness [Unknown]
  - Chest pain [Unknown]
  - Neutrophilia [Unknown]
  - Leukocytosis [Unknown]
  - Therapy interrupted [Unknown]
  - Treatment noncompliance [Unknown]
  - Off label use [Unknown]
